FAERS Safety Report 5370331-X (Version None)
Quarter: 2007Q2

REPORT INFORMATION
  Report Type: 
  Country: None (occurrence: None)
  Receive Date: 20070626
  Receipt Date: 20061109
  Transmission Date: 20071010
  Serious: No
  Sender: FDA-Public Use
  Company Number: US-AMGEN-US199724

PATIENT
  Age: 87 Year
  Sex: Male

DRUGS (8)
  1. ARANESP [Suspect]
     Indication: ANAEMIA
     Dates: start: 20061010
  2. PLAVIX [Concomitant]
  3. PRANDIN [Concomitant]
  4. COREG [Concomitant]
  5. ISOSORBIDE DINITRATE [Concomitant]
  6. POTASSIUM ACETATE [Concomitant]
  7. FUROSEMIDE [Concomitant]
  8. LISINOPRIL [Concomitant]

REACTIONS (1)
  - SLUGGISHNESS [None]
